FAERS Safety Report 12617862 (Version 2)
Quarter: 2016Q3

REPORT INFORMATION
  Report Type: Spontaneous
  Country: US (occurrence: US)
  Receive Date: 20160803
  Receipt Date: 20160819
  Transmission Date: 20161109
  Serious: Yes (Other)
  Sender: FDA-Public Use
  Company Number: US-PFIZER INC-2016354679

PATIENT
  Age: 70 Year
  Sex: Male
  Weight: 85.7 kg

DRUGS (1)
  1. BIVALIRUDIN. [Suspect]
     Active Substance: BIVALIRUDIN
     Indication: INTERVENTIONAL PROCEDURE
     Dosage: 250 MG, UNK(A BOLUS OF THE PRODUCT AND A DRIP WAS STARTED FROM THE MIXTURE)
     Route: 042
     Dates: start: 20160713, end: 20160713

REACTIONS (2)
  - Drug ineffective [Unknown]
  - Thrombosis [Recovering/Resolving]

NARRATIVE: CASE EVENT DATE: 20160713
